FAERS Safety Report 12497791 (Version 3)
Quarter: 2016Q3

REPORT INFORMATION
  Report Type: Spontaneous
  Country: US (occurrence: US)
  Receive Date: 20160625
  Receipt Date: 20160715
  Transmission Date: 20161109
  Serious: No
  Sender: FDA-Public Use
  Company Number: US-009507513-1606USA011711

PATIENT
  Sex: Female

DRUGS (2)
  1. NEXPLANON [Suspect]
     Active Substance: ETONOGESTREL
     Dosage: 68 MG / ONE ROD PER 3 YEARS
     Route: 059
     Dates: start: 20160526
  2. NEXPLANON [Suspect]
     Active Substance: ETONOGESTREL
     Dosage: 68 MG / ONE ROD PER 3 YEARS
     Route: 059
     Dates: start: 20130509, end: 20160526

REACTIONS (3)
  - Device breakage [Recovered/Resolved]
  - Incorrect drug administration duration [Unknown]
  - No adverse event [Unknown]

NARRATIVE: CASE EVENT DATE: 20160510
